FAERS Safety Report 9059073 (Version 1)
Quarter: 2013Q1

REPORT INFORMATION
  Report Type: Spontaneous
  Country: US (occurrence: US)
  Receive Date: 20130211
  Receipt Date: 20130211
  Transmission Date: 20140127
  Serious: No
  Sender: FDA-Public Use
  Company Number: US-BRISTOL-MYERS SQUIBB COMPANY-16735946

PATIENT
  Age: 71 Year
  Sex: Male

DRUGS (6)
  1. METFORMIN HCL [Suspect]
     Indication: DIABETES MELLITUS INADEQUATE CONTROL
     Dosage: 1 TABS
     Route: 048
  2. LISINOPRIL [Suspect]
  3. CONVALLARIA MAJALIS\CRATAEGUS LAEVIGATA LEAF\PROXYPHYLLINE [Suspect]
  4. AVASTIN [Suspect]
  5. AMLODIPINE [Suspect]
  6. LANTUS [Suspect]

REACTIONS (1)
  - Drug ineffective [Unknown]
